FAERS Safety Report 16404793 (Version 1)
Quarter: 2019Q2

REPORT INFORMATION
  Report Type: Spontaneous
  Country: NL (occurrence: NL)
  Receive Date: 20190607
  Receipt Date: 20190607
  Transmission Date: 20190711
  Serious: Yes (Congenital Anomaly, Other)
  Sender: FDA-Public Use
  Company Number: NL-MYLANLABS-2019M1053289

PATIENT
  Sex: Male
  Weight: 4 kg

DRUGS (1)
  1. CETIRIZINE [Suspect]
     Active Substance: CETIRIZINE HYDROCHLORIDE
     Indication: HYPERSENSITIVITY
     Dosage: 10 MG, EV 2 DAYS (QOD)
     Route: 064

REACTIONS (4)
  - Congenital genital malformation [Unknown]
  - Micropenis [Unknown]
  - Cerebral dysgenesis [Unknown]
  - Foetal exposure during pregnancy [Recovered/Resolved]
